FAERS Safety Report 11137044 (Version 1)
Quarter: 2015Q2

REPORT INFORMATION
  Report Type: Spontaneous
  Country: FR (occurrence: FR)
  Receive Date: 20150526
  Receipt Date: 20150526
  Transmission Date: 20150821
  Serious: Yes (Other)
  Sender: FDA-Public Use
  Company Number: FR-GLAXOSMITHKLINE-FR2015GSK067479

PATIENT
  Age: 77 Year
  Sex: Male

DRUGS (3)
  1. CLAVENTIN [Suspect]
     Active Substance: CLAVULANATE POTASSIUM\TICARCILLIN DISODIUM
     Indication: STENOTROPHOMONAS INFECTION
     Dosage: 5 G, TID
     Route: 042
     Dates: start: 201410
  2. BACTRIM FORT [Concomitant]
     Active Substance: SULFAMETHOXAZOLE\TRIMETHOPRIM
     Indication: INFECTION
     Dosage: 1 UNK, BID
  3. VFEND [Concomitant]
     Active Substance: VORICONAZOLE

REACTIONS (2)
  - Weight decreased [Recovering/Resolving]
  - Haematemesis [Recovered/Resolved]

NARRATIVE: CASE EVENT DATE: 201505
